FAERS Safety Report 7007266-2 (Version None)
Quarter: 2010Q3

REPORT INFORMATION
  Report Type: 
  Country: None (occurrence: None)
  Receive Date: 20100922
  Receipt Date: 20100909
  Transmission Date: 20110219
  Serious: Yes (Other)
  Sender: FDA-Public Use
  Company Number: PHHY2010ZA59980

PATIENT
  Age: 69 Year
  Sex: Male

DRUGS (4)
  1. DIOVAN HCT [Suspect]
     Dosage: UNK
     Dates: start: 20010912
  2. ASPIRIN [Concomitant]
     Dosage: 100 MG
  3. ZOCOR [Concomitant]
     Dosage: 10 MG
     Dates: end: 20090519
  4. CONCOR [Concomitant]
     Dosage: 2.5 MG
     Route: 048
     Dates: end: 20090519

REACTIONS (10)
  - ARTERIOSCLEROSIS [None]
  - BLOOD CHOLESTEROL INCREASED [None]
  - BLOOD UREA INCREASED [None]
  - BODY MASS INDEX INCREASED [None]
  - CORONARY ARTERY DISEASE [None]
  - COUGH [None]
  - FATIGUE [None]
  - LOW DENSITY LIPOPROTEIN INCREASED [None]
  - MYOCARDIAL ISCHAEMIA [None]
  - OVERWEIGHT [None]
